FAERS Safety Report 25267127 (Version 1)
Quarter: 2025Q2

REPORT INFORMATION
  Report Type: Report from Study
  Country: CN (occurrence: CN)
  Receive Date: 20250505
  Receipt Date: 20250505
  Transmission Date: 20250716
  Serious: Yes (Other)
  Sender: ROCHE
  Company Number: CN-ROCHE-10000273254

PATIENT

DRUGS (4)
  1. BEVACIZUMAB [Suspect]
     Active Substance: BEVACIZUMAB
     Indication: Non-small cell lung cancer
     Route: 065
  2. ERLOTINIB [Suspect]
     Active Substance: ERLOTINIB
     Indication: Non-small cell lung cancer
     Route: 065
  3. GEFITINIB [Suspect]
     Active Substance: GEFITINIB
     Indication: Non-small cell lung cancer
     Route: 065
  4. ICOTINIB [Suspect]
     Active Substance: ICOTINIB
     Indication: Non-small cell lung cancer
     Route: 065

REACTIONS (11)
  - Hepatic function abnormal [Unknown]
  - Rash [Unknown]
  - Diarrhoea [Unknown]
  - Hypertension [Unknown]
  - Proteinuria [Unknown]
  - Anaemia [Unknown]
  - White blood cell count decreased [Unknown]
  - Platelet count decreased [Unknown]
  - Paronychia [Unknown]
  - Nausea [Unknown]
  - Mouth ulceration [Unknown]
